FAERS Safety Report 7947148-2 (Version None)
Quarter: 2011Q4

REPORT INFORMATION
  Report Type: 
  Country: None (occurrence: None)
  Receive Date: 20111129
  Receipt Date: 20111117
  Transmission Date: 20120403
  Serious: Yes (Death, Life-Threatening, Other)
  Sender: FDA-Public Use
  Company Number: US-RB-034515-11

PATIENT
  Sex: Male

DRUGS (4)
  1. MOTRIN [Concomitant]
     Indication: PAIN
  2. NEURONTIN [Concomitant]
     Indication: PAIN
     Dates: end: 20111107
  3. SUBOXONE [Suspect]
     Indication: DRUG DEPENDENCE
     Route: 060
     Dates: end: 20111107
  4. CELEXA [Concomitant]
     Indication: PRODUCT USED FOR UNKNOWN INDICATION
     Dates: end: 20111107

REACTIONS (5)
  - HYPERHIDROSIS [None]
  - PULMONARY EMBOLISM [None]
  - SYNCOPE [None]
  - DYSPNOEA [None]
  - SUBSTANCE ABUSE [None]
